FAERS Safety Report 9049432 (Version 1)
Quarter: 2013Q1

REPORT INFORMATION
  Report Type: Report from Study
  Country: US (occurrence: US)
  Receive Date: 20130205
  Receipt Date: 20130205
  Transmission Date: 20140127
  Serious: Yes (Other)
  Sender: FDA-Public Use
  Company Number: US-US-EMD SERONO, INC.-7190663

PATIENT
  Sex: Female

DRUGS (1)
  1. REBIF [Suspect]
     Indication: PRODUCT USED FOR UNKNOWN INDICATION
     Route: 058
     Dates: start: 20110506

REACTIONS (4)
  - Menstrual disorder [Unknown]
  - Urinary tract infection [Unknown]
  - Lactose intolerance [Unknown]
  - Gastrointestinal tract irritation [Recovering/Resolving]
